FAERS Safety Report 4667479-1 (Version None)
Quarter: 2005Q2

REPORT INFORMATION
  Report Type: 
  Country: None (occurrence: None)
  Receive Date: 20050519
  Receipt Date: 20050519
  Transmission Date: 20051028
  Serious: No
  Sender: FDA-Public Use
  Company Number: None

PATIENT
  Age: 55 Year
  Sex: Male

DRUGS (12)
  1. TEQUIN [Suspect]
     Indication: BRONCHITIS
     Dosage: 400MG  QAM   ORAL
     Route: 048
     Dates: start: 20050407, end: 20050408
  2. AVANDIA [Concomitant]
  3. LISINOPRIL [Concomitant]
  4. HYDROCHLOROTHIAZIDE [Concomitant]
  5. GLUCOVANCE [Concomitant]
  6. FOLIC ACID [Concomitant]
  7. PLENDIL [Concomitant]
  8. ASPIRIN [Concomitant]
  9. DULCOLAX [Concomitant]
  10. VITAMIN B COMPLEX CAP [Concomitant]
  11. FLONASE [Concomitant]
  12. METAMUCIL [Concomitant]

REACTIONS (2)
  - BLOOD GLUCOSE DECREASED [None]
  - DIZZINESS [None]
